FAERS Safety Report 22241741 (Version 7)
Quarter: 2024Q1

REPORT INFORMATION
  Report Type: Report from Study
  Country: US (occurrence: US)
  Receive Date: 20230421
  Receipt Date: 20240222
  Transmission Date: 20240410
  Serious: No
  Sender: FDA-Public Use
  Company Number: US-002147023-NVSC2023US091114

PATIENT
  Sex: Female

DRUGS (1)
  1. KESIMPTA [Suspect]
     Active Substance: OFATUMUMAB
     Indication: Product used for unknown indication
     Dosage: UNK
     Route: 065
     Dates: end: 20231216

REACTIONS (6)
  - Influenza like illness [Unknown]
  - Insomnia [Unknown]
  - General physical health deterioration [Unknown]
  - Musculoskeletal disorder [Unknown]
  - Nocturia [Unknown]
  - Fall [Unknown]
